FAERS Safety Report 5338943-7 (Version None)
Quarter: 2007Q2

REPORT INFORMATION
  Report Type: 
  Country: None (occurrence: None)
  Receive Date: 20070404
  Receipt Date: 20060927
  Transmission Date: 20071010
  Serious: Yes (Other)
  Sender: FDA-Public Use
  Company Number: HQWYE460202OCT06

PATIENT
  Age: 43 Year
  Sex: Female
  Weight: 68.1 kg

DRUGS (2)
  1. ALAVERT [Suspect]
     Indication: HYPERSENSITIVITY
     Dosage: 1 TABLET AS NEEDED, ORAL
     Route: 048
     Dates: start: 20050101, end: 20050101
  2. ONE-A-DAY (ASCORBIC ACID/CYANOCOBALAMIN/ERGOCALCIFEROL/NICOTINAMIDE/PY [Concomitant]

REACTIONS (1)
  - DRUG EFFECT DECREASED [None]
